FAERS Safety Report 12633032 (Version 2)
Quarter: 2016Q3

REPORT INFORMATION
  Report Type: Spontaneous
  Country: US (occurrence: US)
  Receive Date: 20160808
  Receipt Date: 20160808
  Transmission Date: 20161109
  Serious: No
  Sender: FDA-Public Use
  Company Number: US-BEH-2016058230

PATIENT
  Sex: Female
  Weight: 93 kg

DRUGS (19)
  1. CLONAZEPAM. [Concomitant]
     Active Substance: CLONAZEPAM
  2. ZYRTEC [Concomitant]
     Active Substance: CETIRIZINE HYDROCHLORIDE
  3. ZINC [Concomitant]
     Active Substance: ZINC\ZINC CHLORIDE
  4. PRELIEF [Concomitant]
     Active Substance: CALCIUM GLYCEROPHOSPHATE
  5. MORPHINE [Concomitant]
     Active Substance: MORPHINE
  6. VITAMIN B [Concomitant]
     Active Substance: VITAMIN B
  7. EPIPEN [Concomitant]
     Active Substance: EPINEPHRINE
  8. CEFDINIR. [Concomitant]
     Active Substance: CEFDINIR
  9. DIPHENHYDRAMINE. [Concomitant]
     Active Substance: DIPHENHYDRAMINE
  10. HIZENTRA [Suspect]
     Active Substance: HUMAN IMMUNOGLOBULIN G
     Indication: IMMUNODEFICIENCY COMMON VARIABLE
     Route: 058
  11. SERTALINE [Concomitant]
     Active Substance: SERTRALINE HYDROCHLORIDE
  12. NEXIUM [Concomitant]
     Active Substance: ESOMEPRAZOLE MAGNESIUM
  13. UROGESIC [Concomitant]
  14. TOPIMARTE [Concomitant]
  15. OXYCODONE [Concomitant]
     Active Substance: OXYCODONE
  16. OXYCODONE [Concomitant]
     Active Substance: OXYCODONE
  17. SOLU-MEDROL [Concomitant]
     Active Substance: METHYLPREDNISOLONE SODIUM SUCCINATE
  18. HIZENTRA [Suspect]
     Active Substance: HUMAN IMMUNOGLOBULIN G
     Route: 058
  19. HIZENTRA [Suspect]
     Active Substance: HUMAN IMMUNOGLOBULIN G

REACTIONS (1)
  - Muscle spasms [Unknown]
